FAERS Safety Report 12385103 (Version 1)
Quarter: 2016Q2

REPORT INFORMATION
  Report Type: Spontaneous
  Country: US (occurrence: US)
  Receive Date: 20160519
  Receipt Date: 20160519
  Transmission Date: 20160815
  Serious: No
  Sender: FDA-Public Use
  Company Number: US-BAYER-2016-090317

PATIENT
  Sex: Female

DRUGS (1)
  1. MIRALAX [Suspect]
     Active Substance: POLYETHYLENE GLYCOL 3350
     Dosage: UNK

REACTIONS (4)
  - Diarrhoea [None]
  - Faeces hard [None]
  - Faecal volume increased [None]
  - Frequent bowel movements [None]

NARRATIVE: CASE EVENT DATE: 20160510
